FAERS Safety Report 24001658 (Version 1)
Quarter: 2024Q2

REPORT INFORMATION
  Report Type: Spontaneous
  Country: US (occurrence: US)
  Receive Date: 20240621
  Receipt Date: 20240621
  Transmission Date: 20240716
  Serious: No
  Sender: FDA-Public Use
  Company Number: US-ELI_LILLY_AND_COMPANY-US202406008089

PATIENT

DRUGS (1)
  1. TALTZ [Suspect]
     Active Substance: IXEKIZUMAB
     Indication: Product used for unknown indication
     Dosage: UNK, UNKNOWN
     Route: 065
     Dates: end: 202402

REACTIONS (4)
  - Drug ineffective [Unknown]
  - Psoriasis [Unknown]
  - Arthralgia [Unknown]
  - Neck pain [Unknown]

NARRATIVE: CASE EVENT DATE: 20231101
